FAERS Safety Report 21803268 (Version 3)
Quarter: 2024Q2

REPORT INFORMATION
  Report Type: Report from Study
  Country: US (occurrence: US)
  Receive Date: 20230101
  Receipt Date: 20240401
  Transmission Date: 20240716
  Serious: Yes (Other)
  Sender: FDA-Public Use
  Company Number: US-ABBVIE-4254049

PATIENT
  Age: 79 Year
  Sex: Female
  Weight: 82 kg

DRUGS (11)
  1. HUMIRA [Suspect]
     Active Substance: ADALIMUMAB
     Indication: Psoriatic arthropathy
     Dosage: FORM STRENGTH 40 MILLIGRAMS?CITRATE FREE
     Route: 058
     Dates: start: 2013
  2. HUMIRA [Suspect]
     Active Substance: ADALIMUMAB
     Dosage: FORM STRENGTH 40 MILLIGRAMS?CITRATE FREE
     Route: 058
  3. DULOXETINE [Concomitant]
     Active Substance: DULOXETINE
     Indication: Psoriatic arthropathy
  4. TROSPIUM CHLORIDE [Concomitant]
     Active Substance: TROSPIUM CHLORIDE
     Indication: Urinary tract disorder
     Route: 048
  5. IRON [Concomitant]
     Active Substance: IRON
     Indication: Mineral supplementation
  6. VITAMIN B12 [Concomitant]
     Active Substance: CYANOCOBALAMIN
     Indication: Vitamin supplementation
  7. FOLIC ACID [Concomitant]
     Active Substance: FOLIC ACID
     Indication: Vitamin supplementation
  8. TRAMADOL [Concomitant]
     Active Substance: TRAMADOL\TRAMADOL HYDROCHLORIDE
     Indication: Psoriatic arthropathy
     Dosage: TIME INTERVAL: AS NECESSARY
  9. ROPINIROLE HYDROCHLORIDE [Concomitant]
     Active Substance: ROPINIROLE HYDROCHLORIDE
     Indication: Restless legs syndrome
     Dosage: FORM STRENGTH- 25 MILLIGRAM
  10. LISINOPRIL [Concomitant]
     Active Substance: LISINOPRIL
     Indication: Hypertension
  11. LEVOTHYROXINE [Concomitant]
     Active Substance: LEVOTHYROXINE\LEVOTHYROXINE SODIUM
     Indication: Product used for unknown indication

REACTIONS (3)
  - Cataract [Not Recovered/Not Resolved]
  - Arthralgia [Recovered/Resolved]
  - Papule [Not Recovered/Not Resolved]

NARRATIVE: CASE EVENT DATE: 20220301
